FAERS Safety Report 25349408 (Version 1)
Quarter: 2025Q2

REPORT INFORMATION
  Report Type: Spontaneous
  Country: US (occurrence: US)
  Receive Date: 20250522
  Receipt Date: 20250522
  Transmission Date: 20250716
  Serious: No
  Sender: BRACCO
  Company Number: US-BRACCO-2024US07883

PATIENT
  Sex: Female

DRUGS (1)
  1. E-Z-PASTE [Suspect]
     Active Substance: BARIUM SULFATE
     Route: 067

REACTIONS (3)
  - Off label use [Unknown]
  - Incorrect route of product administration [Unknown]
  - No adverse event [Unknown]
